FAERS Safety Report 13833008 (Version 5)
Quarter: 2017Q4

REPORT INFORMATION
  Report Type: Spontaneous
  Country: US (occurrence: US)
  Receive Date: 20170803
  Receipt Date: 20171214
  Transmission Date: 20180320
  Serious: No
  Sender: FDA-Public Use
  Company Number: US-PFIZER INC-2017331123

PATIENT
  Age: 61 Year
  Sex: Female
  Weight: 78.91 kg

DRUGS (5)
  1. XANAX [Suspect]
     Active Substance: ALPRAZOLAM
     Indication: POST-TRAUMATIC STRESS DISORDER
     Dosage: UNK
     Dates: start: 20170716
  2. XANAX [Suspect]
     Active Substance: ALPRAZOLAM
     Indication: OBSESSIVE-COMPULSIVE DISORDER
     Dosage: UNK
  3. XANAX [Suspect]
     Active Substance: ALPRAZOLAM
     Indication: ANXIETY
     Dosage: 1 MG, 4X/DAY (AS NEEDED)
     Route: 048
  4. XANAX [Suspect]
     Active Substance: ALPRAZOLAM
     Indication: DEPRESSION
     Dosage: 0.5 MG, (TAKE HALF A TABLET SOMETIMES AT NIGHT)
  5. PROZAC [Concomitant]
     Active Substance: FLUOXETINE HYDROCHLORIDE
     Dosage: UNK

REACTIONS (6)
  - Withdrawal syndrome [Unknown]
  - Drug ineffective [Unknown]
  - Product quality issue [Unknown]
  - Malaise [Unknown]
  - Poor quality drug administered [Unknown]
  - Anxiety [Unknown]

NARRATIVE: CASE EVENT DATE: 20170728
